FAERS Safety Report 6389474-7 (Version None)
Quarter: 2009Q4

REPORT INFORMATION
  Report Type: 
  Country: None (occurrence: None)
  Receive Date: 20091006
  Receipt Date: 20090925
  Transmission Date: 20100525
  Serious: Yes (Other)
  Sender: FDA-Public Use
  Company Number: JP-ROCHE-572622

PATIENT
  Sex: Female
  Weight: 61.4 kg

DRUGS (11)
  1. KYTRIL [Suspect]
     Indication: PROPHYLAXIS OF NAUSEA AND VOMITING
     Route: 041
     Dates: start: 20080528, end: 20080528
  2. AVASTIN [Suspect]
     Indication: COLON CANCER METASTATIC
     Route: 041
     Dates: start: 20080528, end: 20080528
  3. IRINOTECAN HYDROCHLORIDE [Suspect]
     Indication: COLON CANCER METASTATIC
     Route: 041
     Dates: start: 20080528, end: 20080528
  4. FLUOROURACIL [Suspect]
     Indication: COLON CANCER METASTATIC
     Route: 041
     Dates: start: 20080528, end: 20080528
  5. ISOVORIN [Suspect]
     Indication: COLON CANCER METASTATIC
     Route: 041
     Dates: start: 20080528, end: 20080528
  6. GASTER D [Concomitant]
     Route: 048
  7. MAGMITT [Concomitant]
     Route: 048
  8. DEXART [Concomitant]
     Dosage: ROUTE: INJECTABLE (NOT OTHERWISE SPECIFIED)
     Route: 050
  9. NAUZELIN [Concomitant]
     Dosage: FORM: ORAL FORMULATION (NOT OTHERWISE SPECIFIED)
     Route: 048
  10. OXYCONTIN [Concomitant]
     Dosage: FORM: SUSTAINED RELEASE TABLET
     Route: 048
  11. RHYTHMY [Concomitant]
     Dosage: NOTE: TAKEN AS NEEDED
     Route: 048
     Dates: start: 20080529, end: 20080616

REACTIONS (1)
  - HEPATITIS [None]
